FAERS Safety Report 18249707 (Version 1)
Quarter: 2020Q3

REPORT INFORMATION
  Report Type: Spontaneous
  Country: US (occurrence: US)
  Receive Date: 20200909
  Receipt Date: 20200909
  Transmission Date: 20201103
  Serious: No
  Sender: FDA-Public Use
  Company Number: US-GILEAD-2020-0493953

PATIENT
  Age: 68 Year
  Sex: Female
  Weight: 49.9 kg

DRUGS (4)
  1. ENBREL [Concomitant]
     Active Substance: ETANERCEPT
  2. RINVOQ [Concomitant]
     Active Substance: UPADACITINIB
  3. LOVASTATIN. [Concomitant]
     Active Substance: LOVASTATIN
  4. VIREAD [Suspect]
     Active Substance: TENOFOVIR DISOPROXIL FUMARATE
     Indication: HEPATITIS C
     Route: 065

REACTIONS (1)
  - Product use issue [Unknown]
